FAERS Safety Report 4608052-0 (Version None)
Quarter: 2005Q1

REPORT INFORMATION
  Report Type: 
  Country: None (occurrence: None)
  Receive Date: 20050314
  Receipt Date: 20050308
  Transmission Date: 20050727
  Serious: Yes (Life-Threatening, Hospitalization, Disabling)
  Sender: FDA-Public Use
  Company Number: US-MERCK-0503USA01168

PATIENT
  Age: 70 Year
  Sex: Male

DRUGS (7)
  1. ZOCOR [Suspect]
     Indication: BLOOD CHOLESTEROL INCREASED
     Route: 048
     Dates: start: 19980101
  2. ASPIRIN [Concomitant]
     Route: 065
  3. [THERAPY UNSPECIFIED] [Concomitant]
     Route: 065
  4. LAMISIL [Concomitant]
     Route: 065
  5. FLOVENT [Concomitant]
     Route: 065
  6. SEREVENT [Concomitant]
     Route: 065
  7. ADVAIR DISKUS 100/50 [Concomitant]
     Route: 065

REACTIONS (1)
  - MYOCARDIAL INFARCTION [None]
